FAERS Safety Report 4984351-8 (Version None)
Quarter: 2006Q2

REPORT INFORMATION
  Report Type: 
  Country: None (occurrence: None)
  Receive Date: 20060420
  Receipt Date: 20060410
  Transmission Date: 20061013
  Serious: Yes (Hospitalization)
  Sender: FDA-Public Use
  Company Number: 2006050464

PATIENT
  Age: 59 Year
  Sex: Female

DRUGS (6)
  1. XANAX [Suspect]
     Indication: ILL-DEFINED DISORDER
     Dosage: 0.5 MG (0.5 MG, INTERVAL: EVERY DAY), ORAL
     Route: 048
  2. MILNACIPRAN (MILNACIPRAN) [Suspect]
     Indication: ILL-DEFINED DISORDER
     Dosage: 100 MG (INTERVAL: EVERY DAY), ORAL
     Route: 048
     Dates: start: 20050715, end: 20051215
  3. RISEPERIDONE (RISEPERIDONE) [Suspect]
     Indication: ILL-DEFINED DISORDER
     Dosage: 37.5 MG, BIMONT), INTRAMUSCULAR
     Route: 030
     Dates: start: 20050815, end: 20050915
  4. LABETALOL (LABETAOLO) [Suspect]
     Indication: ILL-DEFINED DISORDER
     Dosage: 400 MG (200 MG, BID), ORAL
     Route: 048
  5. FLURBIPROFEN [Suspect]
     Indication: ILL-DEFINED DISORDER
     Dosage: 100 MG, ORAL
     Route: 048
  6. CIRKAN (ASCORBIC ACID, HERBAL EXTRACTS NOS, HESPERIDIN METHYL CHALCONE [Suspect]
     Indication: ILL-DEFINED DISORDER
     Dosage: ORAL
     Route: 048

REACTIONS (3)
  - HYPERTONIA [None]
  - MOBILITY DECREASED [None]
  - OEDEMA [None]
